FAERS Safety Report 4454137-1 (Version None)
Quarter: 2004Q3

REPORT INFORMATION
  Report Type: 
  Country: None (occurrence: None)
  Receive Date: 20040824
  Receipt Date: 20040708
  Transmission Date: 20050211
  Serious: No
  Sender: FDA-Public Use
  Company Number: SU-2004-002505

PATIENT
  Age: 77 Year
  Sex: Female

DRUGS (1)
  1. BENICAR [Suspect]
     Indication: HYPERTENSION
     Dosage: PO
     Route: 048

REACTIONS (2)
  - BLOOD URINE [None]
  - EPISTAXIS [None]
